FAERS Safety Report 14273997 (Version 1)
Quarter: 2017Q4

REPORT INFORMATION
  Report Type: Spontaneous
  Country: US (occurrence: US)
  Receive Date: 20171211
  Receipt Date: 20171211
  Transmission Date: 20180321
  Serious: Yes (Disabling, Other)
  Sender: FDA-Public Use
  Company Number: US-OTSUKA-2017_021581

PATIENT
  Age: 59 Year
  Sex: Male

DRUGS (1)
  1. ABILIFY [Suspect]
     Active Substance: ARIPIPRAZOLE
     Indication: POST-TRAUMATIC STRESS DISORDER
     Dosage: 10 MG, UNK
     Route: 065
     Dates: start: 2011, end: 2015

REACTIONS (7)
  - Anxiety [Unknown]
  - Compulsive shopping [Recovered/Resolved]
  - Injury [Unknown]
  - Disability [Unknown]
  - Condition aggravated [Unknown]
  - Gambling [Recovered/Resolved]
  - Product use in unapproved indication [Unknown]

NARRATIVE: CASE EVENT DATE: 20170929
